FAERS Safety Report 7340243-0 (Version None)
Quarter: 2011Q1

REPORT INFORMATION
  Report Type: 
  Country: None (occurrence: None)
  Receive Date: 20110309
  Receipt Date: 20110223
  Transmission Date: 20110831
  Serious: Yes (Other)
  Sender: FDA-Public Use
  Company Number: PHHY2010BR46707

PATIENT
  Sex: Male

DRUGS (2)
  1. DIOVAN AMLO FIX [Suspect]
     Dosage: 320/10 MG
  2. DIOVAN AMLO FIX [Suspect]
     Dosage: 320/5 MG

REACTIONS (1)
  - HYPERTENSION [None]
